FAERS Safety Report 4636705-7 (Version None)
Quarter: 2005Q2

REPORT INFORMATION
  Report Type: 
  Country: None (occurrence: None)
  Receive Date: 20050414
  Receipt Date: 20050402
  Transmission Date: 20051028
  Serious: Yes (Death)
  Sender: FDA-Public Use
  Company Number: 2005053678

PATIENT
  Age: 80 Year
  Sex: Male

DRUGS (15)
  1. TAHOR (ATORVASTATIN) [Suspect]
     Indication: BLOOD CHOLESTEROL INCREASED
     Dosage: 10 MG (1 IN 1 D)
     Dates: start: 20050301, end: 20050101
  2. SODIUM POLYSTYRENE SULFONATE (SODIUM  POLYSTYRENE SULFONATE) [Concomitant]
  3. CALCIUM CARBONATE (CALCIUM CARBONATE) [Concomitant]
  4. ALFACALCIDOL (ALFACALCIDOL) [Concomitant]
  5. ATENOLOL [Concomitant]
  6. CLOPIDOGREL BISULFATE [Concomitant]
  7. MOLSIDOMINE (MOLSIDOMINE) [Concomitant]
  8. NITROGLYCERIN [Concomitant]
  9. ESOMEPRAZOLE MAGNESIUM (SOMEPRAZOLE MAGNESIUM) [Concomitant]
  10. PRABASTATIN (PRAVASTATIN) [Concomitant]
  11. FUROSEMIDE [Concomitant]
  12. ZOLPIDEM TARTRATE [Concomitant]
  13. PROPOXYPHENE HCL [Concomitant]
  14. EPOETIN ALFA (EPOETIN ALFA) [Concomitant]
  15. INSULIN HUMAN INJECTION, ISOPHANE (INSULIN HUMAN INJECTION, ISOPHANE) [Concomitant]

REACTIONS (4)
  - BRONCHITIS [None]
  - PARALYSIS [None]
  - RHABDOMYOLYSIS [None]
  - SUPERINFECTION [None]
